FAERS Safety Report 14718020 (Version 1)
Quarter: 2018Q2

REPORT INFORMATION
  Report Type: Spontaneous
  Country: US (occurrence: US)
  Receive Date: 20180404
  Receipt Date: 20180404
  Transmission Date: 20180711
  Serious: Yes (Other)
  Sender: FDA-Public Use
  Company Number: US-SA-2018SA062429

PATIENT
  Age: 53 Year
  Sex: Female

DRUGS (1)
  1. DUPIXENT [Suspect]
     Active Substance: DUPILUMAB
     Indication: DERMATITIS ATOPIC
     Dosage: ONCE ON DAY 1
     Route: 058
     Dates: start: 20180214, end: 20180223

REACTIONS (3)
  - Feeling hot [Unknown]
  - Rash generalised [Unknown]
  - Rash erythematous [Unknown]

NARRATIVE: CASE EVENT DATE: 20180223
